FAERS Safety Report 5341247-X (Version None)
Quarter: 2007Q2

REPORT INFORMATION
  Report Type: 
  Country: None (occurrence: None)
  Receive Date: 20070530
  Receipt Date: 20070524
  Transmission Date: 20071010
  Serious: Yes (Other)
  Sender: FDA-Public Use
  Company Number: 2007AP000496

PATIENT
  Age: 53 Year
  Sex: Male

DRUGS (7)
  1. CYCLOSPORINE [Suspect]
     Indication: ALLOGENIC BONE MARROW TRANSPLANTATION THERAPY
     Dosage: 3 MG/KG; QD;
  2. CYCLOSPORINE [Suspect]
     Indication: PROPHYLAXIS AGAINST GRAFT VERSUS HOST DISEASE
     Dosage: 3 MG/KG; QD;
  3. FLUDARABINE PHOSPHATE [Suspect]
     Dosage: 125 MG/M2;
  4. CYCLOPHOSPHAMIDE [Concomitant]
  5. DEXAMETHASONE 0.5MG TAB [Concomitant]
  6. PREDNISONE TAB [Concomitant]
  7. MYCOPHENOLATE MOFETIL [Concomitant]

REACTIONS (3)
  - BASAL CELL CARCINOMA [None]
  - CHRONIC GRAFT VERSUS HOST DISEASE [None]
  - MALIGNANT MELANOMA [None]
